FAERS Safety Report 16321473 (Version 1)
Quarter: 2019Q2

REPORT INFORMATION
  Report Type: Spontaneous
  Country: GB (occurrence: GB)
  Receive Date: 20190516
  Receipt Date: 20190516
  Transmission Date: 20190711
  Serious: Yes (Death)
  Sender: FDA-Public Use
  Company Number: GB-BAYER-2019-094749

PATIENT
  Sex: Male

DRUGS (1)
  1. STIVARGA [Suspect]
     Active Substance: REGORAFENIB
     Indication: GASTROINTESTINAL STROMAL TUMOUR
     Dosage: 120 MG, QD (EACH DAY FOR 21 DAYS FOLLOWED BY A SEVEN DAY BREAK, AS DIRECTED)
     Route: 048
     Dates: start: 20180620

REACTIONS (1)
  - Death [Fatal]
